FAERS Safety Report 19972730 (Version 1)
Quarter: 2021Q4

REPORT INFORMATION
  Report Type: Spontaneous
  Country: US (occurrence: US)
  Receive Date: 20211017
  Receipt Date: 20211017
  Transmission Date: 20220303
  Serious: Yes (Hospitalization)
  Sender: FDA-Public Use
  Company Number: None

PATIENT
  Age: 79 Year
  Sex: Male
  Weight: 176.6 kg

DRUGS (2)
  1. CARBOPLATIN [Suspect]
     Active Substance: CARBOPLATIN
     Dates: end: 20210701
  2. TAXOL [Suspect]
     Active Substance: PACLITAXEL
     Dates: end: 20210701

REACTIONS (7)
  - Carotid artery stenosis [None]
  - White blood cell count decreased [None]
  - Therapy interrupted [None]
  - Asthenia [None]
  - Supraventricular tachycardia [None]
  - Presyncope [None]
  - Dehydration [None]

NARRATIVE: CASE EVENT DATE: 20210919
